FAERS Safety Report 22600435 (Version 2)
Quarter: 2023Q2

REPORT INFORMATION
  Report Type: Spontaneous
  Country: US (occurrence: US)
  Receive Date: 20230614
  Receipt Date: 20230615
  Transmission Date: 20230721
  Serious: Yes (Other)
  Sender: FDA-Public Use
  Company Number: US-ABBVIE-5276671

PATIENT
  Sex: Female

DRUGS (1)
  1. REFRESH LIQUIGEL [Suspect]
     Active Substance: CARBOXYMETHYLCELLULOSE SODIUM
     Indication: Dry eye

REACTIONS (3)
  - Surgery [Unknown]
  - Eye disorder [Unknown]
  - Blepharoplasty [Unknown]

NARRATIVE: CASE EVENT DATE: 20230501
